FAERS Safety Report 20411384 (Version 3)
Quarter: 2022Q1

REPORT INFORMATION
  Report Type: Report from Study
  Country: DE (occurrence: DE)
  Receive Date: 20220201
  Receipt Date: 20220222
  Transmission Date: 20220423
  Serious: Yes (Hospitalization)
  Sender: FDA-Public Use
  Company Number: DE-KYOWAKIRIN-2022BKK001068

PATIENT

DRUGS (7)
  1. BUROSUMAB [Suspect]
     Active Substance: BUROSUMAB
     Indication: Hereditary hypophosphataemic rickets
     Dosage: 20 MG
     Route: 058
     Dates: start: 20210111
  2. BUROSUMAB [Suspect]
     Active Substance: BUROSUMAB
     Dosage: 30 MG
     Route: 058
     Dates: start: 20220207
  3. BUROSUMAB [Suspect]
     Active Substance: BUROSUMAB
     Dosage: 30 MG
     Route: 058
     Dates: start: 20220126, end: 2022
  4. MOVICOL [Concomitant]
     Active Substance: POLYETHYLENE GLYCOL 3350\POTASSIUM CHLORIDE\SODIUM BICARBONATE\SODIUM CHLORIDE
     Indication: Product used for unknown indication
     Dosage: 3X1 SACHETS
     Route: 065
  5. MOVICOL [Concomitant]
     Active Substance: POLYETHYLENE GLYCOL 3350\POTASSIUM CHLORIDE\SODIUM BICARBONATE\SODIUM CHLORIDE
     Dosage: 1X1 SACHET DAILY
     Route: 065
  6. MOVICOL [Concomitant]
     Active Substance: POLYETHYLENE GLYCOL 3350\POTASSIUM CHLORIDE\SODIUM BICARBONATE\SODIUM CHLORIDE
     Dosage: 2X1 SACHET DAILY
     Route: 065
  7. NOVALGIN (METAMIZOLE SODIUM) [Concomitant]
     Active Substance: METAMIZOLE SODIUM
     Indication: Product used for unknown indication
     Dosage: 20 DROPS IF REQUIRED
     Route: 065

REACTIONS (2)
  - Abdominal pain [Recovered/Resolved]
  - Constipation [Not Recovered/Not Resolved]

NARRATIVE: CASE EVENT DATE: 20220125
